FAERS Safety Report 14298993 (Version 1)
Quarter: 2017Q4

REPORT INFORMATION
  Report Type: Spontaneous
  Country: US (occurrence: US)
  Receive Date: 20171216
  Receipt Date: 20171216
  Transmission Date: 20180321
  Serious: Yes (Life-Threatening, Hospitalization)
  Sender: FDA-Public Use
  Company Number: None

PATIENT
  Age: 71 Year
  Sex: Male
  Weight: 75 kg

DRUGS (1)
  1. RITUXIMAB. [Suspect]
     Active Substance: RITUXIMAB
     Indication: B-CELL LYMPHOMA
     Dosage: ?          OTHER FREQUENCY:ONCE;?INTRAVENOUS (NOT OTHERWISE SPECIFIED)?
     Route: 042
     Dates: start: 20170404, end: 20171204

REACTIONS (14)
  - Blood pressure decreased [None]
  - Stridor [None]
  - Pulmonary mass [None]
  - Infusion related reaction [None]
  - Chills [None]
  - Dyspnoea [None]
  - Dysphonia [None]
  - Respiratory distress [None]
  - Disease progression [None]
  - Chest discomfort [None]
  - Lymphadenopathy [None]
  - Drug intolerance [None]
  - Acute respiratory failure [None]
  - B-cell lymphoma [None]

NARRATIVE: CASE EVENT DATE: 20171204
